FAERS Safety Report 5093393-6 (Version None)
Quarter: 2006Q3

REPORT INFORMATION
  Report Type: 
  Country: None (occurrence: None)
  Receive Date: 20060828
  Receipt Date: 20060816
  Transmission Date: 20061208
  Serious: Yes (Other)
  Sender: FDA-Public Use
  Company Number: 14615

PATIENT
  Age: 31 Year
  Sex: Male

DRUGS (3)
  1. BLEOMYCIN [Suspect]
     Indication: TESTICULAR EMBRYONAL CARCINOMA
     Dosage: 30 MG WEEKLY IV
     Route: 042
  2. CISPLATIN [Concomitant]
  3. ETOPOSIDE [Concomitant]

REACTIONS (6)
  - ALOPECIA [None]
  - COUGH [None]
  - NAIL DISCOLOURATION [None]
  - OBSTRUCTIVE AIRWAYS DISORDER [None]
  - PIGMENTATION DISORDER [None]
  - PRURITUS GENERALISED [None]
